FAERS Safety Report 23694837 (Version 1)
Quarter: 2024Q2

REPORT INFORMATION
  Report Type: Spontaneous
  Country: US (occurrence: US)
  Receive Date: 20240402
  Receipt Date: 20240402
  Transmission Date: 20240717
  Serious: Yes (Other)
  Sender: FDA-Public Use
  Company Number: US-CPL-004107

PATIENT
  Sex: Female

DRUGS (4)
  1. VERAPAMIL [Suspect]
     Active Substance: VERAPAMIL HYDROCHLORIDE
     Indication: Headache
     Dosage: EXTENDED RELEASE TABLET?STRENGTH: 240 MG
  2. LEVETIRACETAM [Suspect]
     Active Substance: LEVETIRACETAM
     Indication: Seizure
     Dosage: STRENGTH: 250 MG
  3. LEVETIRACETAM [Suspect]
     Active Substance: LEVETIRACETAM
     Indication: Seizure
     Dosage: STRENGTH: 250 MG
  4. TOPIRAMATE [Suspect]
     Active Substance: TOPIRAMATE
     Indication: Seizure
     Dosage: STRENGTH: 50 MG

REACTIONS (11)
  - Pharyngeal swelling [Not Recovered/Not Resolved]
  - Malaise [Not Recovered/Not Resolved]
  - Inflammation [Unknown]
  - Blood thyroid stimulating hormone increased [Unknown]
  - Head discomfort [Not Recovered/Not Resolved]
  - Blood pressure decreased [Unknown]
  - Dyspepsia [Unknown]
  - Abdominal discomfort [Unknown]
  - Weight decreased [Unknown]
  - Dizziness [Unknown]
  - Product use complaint [Unknown]
